FAERS Safety Report 6177443-1 (Version None)
Quarter: 2009Q2

REPORT INFORMATION
  Report Type: 
  Country: None (occurrence: None)
  Receive Date: 20090501
  Receipt Date: 20090501
  Transmission Date: 20091009
  Serious: Yes (Life-Threatening)
  Sender: FDA-Public Use
  Company Number: None

PATIENT
  Age: 52 Year
  Sex: Female
  Weight: 61.2 kg

DRUGS (9)
  1. HEPARIN [Suspect]
     Indication: THROMBOSIS
     Dosage: 700-650-625UNIT/HR INTRAVENOUS
     Route: 042
     Dates: start: 20090209, end: 20090211
  2. CARBAMAZEPINE [Concomitant]
  3. CEFEPIME [Concomitant]
  4. GABAPENTIN [Concomitant]
  5. INSULIN ASPART [Concomitant]
  6. LANSOPRAZOLE [Concomitant]
  7. LINEZOLID [Concomitant]
  8. PREDNISONE [Concomitant]
  9. SENNA [Concomitant]

REACTIONS (2)
  - ACTIVATED PARTIAL THROMBOPLASTIN TIME PROLONGED [None]
  - HAEMATOMA [None]
